FAERS Safety Report 19969869 (Version 1)
Quarter: 2021Q4

REPORT INFORMATION
  Report Type: Spontaneous
  Country: US (occurrence: US)
  Receive Date: 20211019
  Receipt Date: 20211019
  Transmission Date: 20220304
  Serious: No
  Sender: FDA-Public Use
  Company Number: US-BEH-2021136976

PATIENT
  Sex: Male

DRUGS (2)
  1. HIZENTRA [Suspect]
     Active Substance: HUMAN IMMUNOGLOBULIN G
     Indication: Multifocal motor neuropathy
     Dosage: 13 GRAM, QW
     Route: 058
     Dates: start: 20210208
  2. HIZENTRA [Suspect]
     Active Substance: HUMAN IMMUNOGLOBULIN G
     Dosage: 13 GRAM, QW
     Route: 058
     Dates: start: 20210208

REACTIONS (5)
  - Infusion site urticaria [Unknown]
  - Infusion site erythema [Unknown]
  - Infusion site swelling [Unknown]
  - No adverse event [Unknown]
  - Off label use [Unknown]
